FAERS Safety Report 18820270 (Version 1)
Quarter: 2021Q1

REPORT INFORMATION
  Report Type: Spontaneous
  Country: FR (occurrence: FR)
  Receive Date: 20210202
  Receipt Date: 20210202
  Transmission Date: 20210419
  Serious: Yes (Hospitalization)
  Sender: FDA-Public Use
  Company Number: NVSC2021FR020162

PATIENT
  Age: 57 Year
  Sex: Male
  Weight: 91 kg

DRUGS (4)
  1. DEXAMBUTOL [Suspect]
     Active Substance: ETHAMBUTOL HYDROCHLORIDE
     Indication: ADRENAL GLAND TUBERCULOSIS
     Dosage: 1500 MG
     Route: 048
     Dates: start: 20201204, end: 20201212
  2. RIMACTAN [Suspect]
     Active Substance: RIFAMPIN
     Indication: ADRENAL GLAND TUBERCULOSIS
     Dosage: 900 MG
     Route: 048
     Dates: start: 20201204, end: 20201212
  3. RIMIFON [Suspect]
     Active Substance: ISONIAZID
     Indication: ADRENAL GLAND TUBERCULOSIS
     Dosage: 300 MG
     Route: 048
     Dates: start: 20201204, end: 20201212
  4. PIRILENE [Suspect]
     Active Substance: PYRAZINAMIDE
     Indication: ADRENAL GLAND TUBERCULOSIS
     Dosage: 2.5 G
     Route: 048
     Dates: start: 20201204, end: 20201212

REACTIONS (1)
  - Hepatocellular injury [Recovering/Resolving]

NARRATIVE: CASE EVENT DATE: 20201212
